FAERS Safety Report 14888641 (Version 1)
Quarter: 2018Q2

REPORT INFORMATION
  Report Type: Spontaneous
  Country: CN (occurrence: CN)
  Receive Date: 20180513
  Receipt Date: 20180513
  Transmission Date: 20180711
  Serious: Yes (Other)
  Sender: FDA-Public Use
  Company Number: CN-BAXTER-2018BAX013882

PATIENT
  Age: 59 Year
  Sex: Female
  Weight: 44.5 kg

DRUGS (4)
  1. FLUOROURACIL INJECTION [Suspect]
     Active Substance: FLUOROURACIL
     Indication: CHEMOTHERAPY
     Dosage: FOR 24H CONTINUOUSLY-PUMPED CHEMOTHERAPY DRIPPING SPEED OF 23 ML/H
     Route: 041
     Dates: start: 20180309, end: 20180310
  2. 5% GLUCOSE  INJECTION [Suspect]
     Active Substance: DEXTROSE
     Route: 041
     Dates: start: 20180309, end: 20180310
  3. 5% GLUCOSE  INJECTION [Suspect]
     Active Substance: DEXTROSE
     Indication: MEDICATION DILUTION
     Dosage: FOR 24H CONTINUOUSLY-PUMPED CHEMOTHERAPY DRIPPING SPEED OF 23 ML/H
     Route: 041
     Dates: start: 20180309, end: 20180310
  4. POTASSIUM CHLORIDE INJECTION [Suspect]
     Active Substance: POTASSIUM CHLORIDE
     Indication: ELECTROLYTE SUBSTITUTION THERAPY
     Route: 041
     Dates: start: 20180309, end: 20180310

REACTIONS (12)
  - Upper respiratory tract congestion [None]
  - Red blood cell count decreased [None]
  - Haemoglobin decreased [None]
  - Neutrophil percentage increased [None]
  - C-reactive protein increased [None]
  - Red blood cell sedimentation rate increased [None]
  - Increased upper airway secretion [None]
  - Dysphonia [Recovering/Resolving]
  - Pyrexia [Recovering/Resolving]
  - Chills [Recovering/Resolving]
  - Breath sounds abnormal [None]
  - PO2 increased [None]

NARRATIVE: CASE EVENT DATE: 20180310
